FAERS Safety Report 20280118 (Version 1)
Quarter: 2021Q4

REPORT INFORMATION
  Report Type: Spontaneous
  Country: US (occurrence: None)
  Receive Date: 20211231
  Receipt Date: 20211231
  Transmission Date: 20220303
  Serious: Yes (Hospitalization, Disabling, Other)
  Sender: FDA-Public Use
  Company Number: None

PATIENT
  Age: 38 Year
  Weight: 71.1 kg

DRUGS (3)
  1. ABILIFY [Suspect]
     Active Substance: ARIPIPRAZOLE
     Indication: Product used for unknown indication
     Dosage: OTHER QUANTITY : 30 TABLET(S);?FREQUENCY : AT BEDTIME;?
     Route: 048
     Dates: start: 20180801
  2. VITAMINS [Concomitant]
     Active Substance: VITAMINS
  3. ECHINACEA [Concomitant]
     Active Substance: ECHINACEA, UNSPECIFIED

REACTIONS (6)
  - Skin disorder [None]
  - Dyspnoea [None]
  - Acne [None]
  - Mood swings [None]
  - Loss of consciousness [None]
  - Pain [None]

NARRATIVE: CASE EVENT DATE: 20211221
